FAERS Safety Report 17783979 (Version 1)
Quarter: 2020Q2

REPORT INFORMATION
  Report Type: Spontaneous
  Country: US (occurrence: US)
  Receive Date: 20200514
  Receipt Date: 20200514
  Transmission Date: 20200714
  Serious: No
  Sender: FDA-Public Use
  Company Number: US-TEVA-2020-US-1235673

PATIENT
  Sex: Female

DRUGS (2)
  1. METFORMIN HCL 500 MG ER [Suspect]
     Active Substance: METFORMIN HYDROCHLORIDE
     Route: 065
  2. TEVA ATENOLOL [Concomitant]
     Active Substance: ATENOLOL
     Route: 065

REACTIONS (5)
  - Drug ineffective [Unknown]
  - Product availability issue [Unknown]
  - Reaction to excipient [Unknown]
  - Product substitution issue [Unknown]
  - Blood glucose fluctuation [Unknown]
